FAERS Safety Report 15997268 (Version 3)
Quarter: 2019Q2

REPORT INFORMATION
  Report Type: Spontaneous
  Country: US (occurrence: US)
  Receive Date: 20190222
  Receipt Date: 20190415
  Transmission Date: 20190711
  Serious: Yes (Death)
  Sender: FDA-Public Use
  Company Number: US-VIFOR (INTERNATIONAL) INC.-VIT-2019-01530

PATIENT
  Sex: Female
  Weight: 55.93 kg

DRUGS (31)
  1. ASPIRIN. [Concomitant]
     Active Substance: ASPIRIN
  2. PROCRIT [Concomitant]
     Active Substance: ERYTHROPOIETIN
  3. VENTOLIN [Concomitant]
     Active Substance: ALBUTEROL SULFATE
  4. NITROGLYCERIN. [Concomitant]
     Active Substance: NITROGLYCERIN
  5. VITAMIN D3 [Concomitant]
     Active Substance: CHOLECALCIFEROL
  6. VELTASSA [Suspect]
     Active Substance: PATIROMER
     Indication: HYPERKALAEMIA
  7. STOOL SOFTENER (DOCUSATE) [Concomitant]
     Active Substance: DOCUSATE
  8. FERROUS SULFATE. [Concomitant]
     Active Substance: FERROUS SULFATE
  9. FUROSEMIDE. [Concomitant]
     Active Substance: FUROSEMIDE
  10. PREDNISONE. [Concomitant]
     Active Substance: PREDNISONE
  11. VICODIN [Concomitant]
     Active Substance: ACETAMINOPHEN\HYDROCODONE BITARTRATE
  12. CRESTOR [Concomitant]
     Active Substance: ROSUVASTATIN CALCIUM
  13. ULORIC [Concomitant]
     Active Substance: FEBUXOSTAT
  14. XOPENEX [Concomitant]
     Active Substance: LEVALBUTEROL HYDROCHLORIDE
     Dosage: 2 PUFF EVERY NIGHT
  15. FLONASE [Concomitant]
     Active Substance: FLUTICASONE PROPIONATE
  16. MOVANTIK [Concomitant]
     Active Substance: NALOXEGOL OXALATE
  17. POLYETHYLENE [Concomitant]
     Active Substance: HIGH DENSITY POLYETHYLENE
     Indication: CONSTIPATION
  18. GENTAMICIN. [Concomitant]
     Active Substance: GENTAMICIN
  19. MEGESTROL [Concomitant]
     Active Substance: MEGESTROL
  20. SINGULAIR [Concomitant]
     Active Substance: MONTELUKAST SODIUM
  21. SUCRALFATE. [Concomitant]
     Active Substance: SUCRALFATE
  22. TYLENOL [Concomitant]
     Active Substance: ACETAMINOPHEN
     Indication: PAIN
  23. AMLODIPINE [Concomitant]
     Active Substance: AMLODIPINE BESYLATE
  24. SPIRIVA [Concomitant]
     Active Substance: TIOTROPIUM BROMIDE MONOHYDRATE
  25. VELTASSA [Suspect]
     Active Substance: PATIROMER
     Route: 048
  26. ADVAIR HFA [Concomitant]
     Active Substance: FLUTICASONE PROPIONATE\SALMETEROL XINAFOATE
  27. CENTRUM [Concomitant]
     Active Substance: VITAMINS
  28. FOLIC ACID. [Concomitant]
     Active Substance: FOLIC ACID
  29. NEXIUM [Concomitant]
     Active Substance: ESOMEPRAZOLE MAGNESIUM
  30. SENSIPAR [Concomitant]
     Active Substance: CINACALCET HYDROCHLORIDE
  31. ZINC. [Concomitant]
     Active Substance: ZINC

REACTIONS (2)
  - Constipation [Unknown]
  - Death [Fatal]
